FAERS Safety Report 6515450-7 (Version None)
Quarter: 2009Q4

REPORT INFORMATION
  Report Type: 
  Country: None (occurrence: None)
  Receive Date: 20091223
  Receipt Date: 20091214
  Transmission Date: 20100525
  Serious: Yes (Other)
  Sender: FDA-Public Use
  Company Number: PHHY2009US56237

PATIENT
  Age: 62 Year
  Sex: Male

DRUGS (1)
  1. GLEEVEC [Suspect]
     Indication: GASTROINTESTINAL CARCINOMA
     Dosage: 400 MG DAILY
     Route: 048
     Dates: start: 20090925

REACTIONS (10)
  - ANAEMIA [None]
  - ARTHRALGIA [None]
  - BLOOD PHOSPHORUS DECREASED [None]
  - DIARRHOEA [None]
  - FATIGUE [None]
  - HEAT RASH [None]
  - HEPATIC HAEMORRHAGE [None]
  - MYALGIA [None]
  - NAUSEA [None]
  - RASH [None]
